FAERS Safety Report 8043165-5 (Version None)
Quarter: 2011Q4

REPORT INFORMATION
  Report Type: 
  Country: None (occurrence: None)
  Receive Date: 20111202
  Receipt Date: 20101015
  Transmission Date: 20120403
  Serious: Yes (Hospitalization)
  Sender: FDA-Public Use
  Company Number: 2010SP055017

PATIENT
  Age: 21 Year
  Sex: Female
  Weight: 48.9885 kg

DRUGS (1)
  1. NUVARING [Suspect]
     Indication: PRODUCT USED FOR UNKNOWN INDICATION
     Dates: start: 20090701, end: 20091201

REACTIONS (8)
  - COGNITIVE DISORDER [None]
  - EMOTIONAL DISORDER [None]
  - DEPRESSION [None]
  - DEEP VEIN THROMBOSIS [None]
  - URINARY TRACT INFECTION [None]
  - PULMONARY EMBOLISM [None]
  - MENTAL DISORDER [None]
  - SCIATICA [None]
